FAERS Safety Report 4655387-1 (Version None)
Quarter: 2005Q2

REPORT INFORMATION
  Report Type: 
  Country: None (occurrence: None)
  Receive Date: 20050505
  Receipt Date: 20050418
  Transmission Date: 20051028
  Serious: Yes (Death)
  Sender: FDA-Public Use
  Company Number: USA050495829

PATIENT
  Age: 20 Year
  Sex: Female

DRUGS (1)
  1. STRATTERA [Suspect]

REACTIONS (1)
  - COMPLETED SUICIDE [None]
